FAERS Safety Report 12495368 (Version 1)
Quarter: 2016Q2

REPORT INFORMATION
  Report Type: Spontaneous
  Country: US (occurrence: None)
  Receive Date: 20160623
  Receipt Date: 20160623
  Transmission Date: 20160815
  Serious: Yes (Hospitalization, Disabling)
  Sender: FDA-Public Use
  Company Number: None

PATIENT
  Age: 59 Year
  Sex: Male
  Weight: 113.5 kg

DRUGS (1)
  1. HYDRALAZINE [Suspect]
     Active Substance: HYDRALAZINE HYDROCHLORIDE
     Indication: HYPERTENSION
     Route: 048
     Dates: start: 20140528, end: 20160428

REACTIONS (17)
  - Antineutrophil cytoplasmic antibody positive [None]
  - End stage renal disease [None]
  - Atrial fibrillation [None]
  - Blood aldosterone decreased [None]
  - Renal cyst [None]
  - Ileus [None]
  - Acute kidney injury [None]
  - Uraemic encephalopathy [None]
  - Haemodialysis [None]
  - Renin decreased [None]
  - Cellulitis [None]
  - Antinuclear antibody positive [None]
  - Mental status changes [None]
  - Sepsis [None]
  - Bacterial test positive [None]
  - Hypokalaemia [None]
  - Vasculitis [None]

NARRATIVE: CASE EVENT DATE: 20160317
